FAERS Safety Report 11868535 (Version 1)
Quarter: 2015Q4

REPORT INFORMATION
  Report Type: Spontaneous
  Country: US (occurrence: US)
  Receive Date: 20151225
  Receipt Date: 20151225
  Transmission Date: 20160305
  Serious: No
  Sender: FDA-Public Use
  Company Number: US-ASTRAZENECA-2015SF28032

PATIENT
  Age: 70 Year
  Sex: Male

DRUGS (1)
  1. DALIRESP [Suspect]
     Active Substance: ROFLUMILAST
     Indication: CONDITION AGGRAVATED
     Route: 048
     Dates: start: 201512

REACTIONS (2)
  - Product use issue [Unknown]
  - Hallucination [Unknown]
